FAERS Safety Report 5054416-3 (Version None)
Quarter: 2006Q3

REPORT INFORMATION
  Report Type: 
  Country: None (occurrence: None)
  Receive Date: 20060713
  Receipt Date: 20060630
  Transmission Date: 20061208
  Serious: Yes (Hospitalization)
  Sender: FDA-Public Use
  Company Number: 2006BI009445

PATIENT
  Age: 68 Year
  Sex: Female
  Weight: 53.5244 kg

DRUGS (4)
  1. AVONEX [Suspect]
     Indication: RELAPSING-REMITTING MULTIPLE SCLEROSIS
     Dosage: 30 UG; QW; IM
     Route: 030
     Dates: start: 20040301
  2. FOSAMAX [Concomitant]
  3. SANCTURA [Concomitant]
  4. FAMPRIDINE SR [Concomitant]

REACTIONS (3)
  - MUSCLE SPASTICITY [None]
  - SYNCOPE [None]
  - VARICOSE VEIN RUPTURED [None]
